FAERS Safety Report 25482078 (Version 1)
Quarter: 2025Q2

REPORT INFORMATION
  Report Type: Report from Study
  Country: BR (occurrence: BR)
  Receive Date: 20250626
  Receipt Date: 20250626
  Transmission Date: 20250716
  Serious: Yes (Hospitalization)
  Sender: ABBVIE
  Company Number: BR-ABBVIE-6339228

PATIENT
  Age: 79 Year
  Sex: Female
  Weight: 55 kg

DRUGS (1)
  1. HUMIRA [Suspect]
     Active Substance: ADALIMUMAB
     Indication: Juvenile idiopathic arthritis
     Route: 058

REACTIONS (14)
  - Onychomycosis [Unknown]
  - Nail discomfort [Not Recovered/Not Resolved]
  - Psoriasis [Not Recovered/Not Resolved]
  - Urinary tract infection [Recovered/Resolved]
  - Immunodeficiency [Unknown]
  - Fall [Unknown]
  - Upper limb fracture [Not Recovered/Not Resolved]
  - Osteoporosis [Unknown]
  - Vitiligo [Recovered/Resolved]
  - Psoriatic arthropathy [Unknown]
  - Back pain [Unknown]
  - Drug hypersensitivity [Not Recovered/Not Resolved]
  - Illness [Unknown]
  - Skin exfoliation [Not Recovered/Not Resolved]

NARRATIVE: CASE EVENT DATE: 20190101
